FAERS Safety Report 8282918-5 (Version None)
Quarter: 2012Q2

REPORT INFORMATION
  Report Type: 
  Country: None (occurrence: None)
  Receive Date: 20120410
  Receipt Date: 20120326
  Transmission Date: 20120825
  Serious: Yes (Other)
  Sender: FDA-Public Use
  Company Number: UCM201203-000037

PATIENT
  Age: 44 Year
  Sex: Female

DRUGS (1)
  1. MELOXICAM [Suspect]
     Indication: MUSCULOSKELETAL PAIN
     Dosage: CUMULATIVE DOSE OF 7.5 MG, ORAL
     Route: 048

REACTIONS (2)
  - DRUG ERUPTION [None]
  - VULVOVAGINAL PRURITUS [None]
